FAERS Safety Report 7307936-2 (Version None)
Quarter: 2011Q1

REPORT INFORMATION
  Report Type: 
  Country: None (occurrence: None)
  Receive Date: 20110210
  Receipt Date: 20110201
  Transmission Date: 20110831
  Serious: Yes (Other)
  Sender: FDA-Public Use
  Company Number: 023257

PATIENT
  Sex: Female
  Weight: 75 kg

DRUGS (8)
  1. METHOTREXATE [Concomitant]
  2. BLACKMORES VITAMIN C [Concomitant]
  3. CIMZIA [Suspect]
     Indication: RHEUMATOID ARTHRITIS
     Dosage: SEE IMAGE
     Route: 058
     Dates: start: 20100601
  4. CIMZIA [Suspect]
     Indication: RHEUMATOID ARTHRITIS
     Dosage: SEE IMAGE
     Route: 058
     Dates: start: 20100701, end: 20100901
  5. CIMZIA [Suspect]
     Indication: RHEUMATOID ARTHRITIS
     Dosage: SEE IMAGE
     Route: 058
     Dates: start: 20101202
  6. VICODIN [Concomitant]
  7. PREDNISONE [Concomitant]
  8. FOLIC ACID [Concomitant]

REACTIONS (1)
  - SINUSITIS [None]
